FAERS Safety Report 5702458-4 (Version None)
Quarter: 2008Q2

REPORT INFORMATION
  Report Type: 
  Country: None (occurrence: None)
  Receive Date: 20080410
  Receipt Date: 20080410
  Transmission Date: 20081010
  Serious: Yes (Hospitalization)
  Sender: FDA-Public Use
  Company Number: None

PATIENT
  Age: 82 Year
  Sex: Female
  Weight: 81.6475 kg

DRUGS (1)
  1. SUCCINYLCHOLINE CHLORIDE [Suspect]
     Indication: ANAESTHESIA
     Dates: start: 20080109, end: 20080109

REACTIONS (4)
  - APNOEIC ATTACK [None]
  - METABOLIC DISORDER [None]
  - NERVE STIMULATION TEST ABNORMAL [None]
  - TACHYCARDIA [None]
